FAERS Safety Report 6349334-4 (Version None)
Quarter: 2009Q3

REPORT INFORMATION
  Report Type: 
  Country: None (occurrence: None)
  Receive Date: 20090911
  Receipt Date: 20090904
  Transmission Date: 20100115
  Serious: Yes (Hospitalization)
  Sender: FDA-Public Use
  Company Number: B0592702A

PATIENT
  Age: 70 Year
  Sex: Male

DRUGS (1)
  1. TRANYLCYPROMINE SULFATE [Suspect]

REACTIONS (7)
  - AFFECTIVE DISORDER [None]
  - AGITATION [None]
  - DRUG DEPENDENCE [None]
  - DYSARTHRIA [None]
  - MANIA [None]
  - PSYCHOTIC DISORDER [None]
  - THROMBOCYTOPENIA [None]
